FAERS Safety Report 5765718-7 (Version None)
Quarter: 2008Q2

REPORT INFORMATION
  Report Type: 
  Country: None (occurrence: None)
  Receive Date: 20080611
  Receipt Date: 20080603
  Transmission Date: 20081010
  Serious: Yes (Hospitalization, Other)
  Sender: FDA-Public Use
  Company Number: PHHY2008JP08687

PATIENT
  Age: 39 Year
  Sex: Female

DRUGS (3)
  1. DIOVAN [Suspect]
     Indication: HYPERTENSION
     Dosage: 80 MG, QD
     Route: 048
     Dates: start: 20060522, end: 20080520
  2. MIXED HORMONE PREPARATIONS [Concomitant]
     Dosage: 1 DF, UNK
     Route: 048
     Dates: start: 20040614, end: 20080520
  3. NORGESTREL AND ETHINYL ESTRADIOL [Concomitant]
     Dosage: 1 DF, UNK
     Route: 048
     Dates: start: 20040614, end: 20080520

REACTIONS (3)
  - HYPOKALAEMIA [None]
  - MUSCULAR WEAKNESS [None]
  - URINE POTASSIUM DECREASED [None]
